FAERS Safety Report 6589770-4 (Version None)
Quarter: 2010Q1

REPORT INFORMATION
  Report Type: 
  Country: None (occurrence: None)
  Receive Date: 20100219
  Receipt Date: 20100212
  Transmission Date: 20100710
  Serious: Yes (Other)
  Sender: FDA-Public Use
  Company Number: DE-BAYER-201014012GPV

PATIENT
  Age: 21 Year
  Sex: Female

DRUGS (2)
  1. MINISISTON 20 FEM [Suspect]
     Indication: CONTRACEPTION
     Dosage: TOTAL DAILY DOSE: 1 DF
     Route: 048
     Dates: start: 20100101
  2. CLOZAPINE [Interacting]
     Indication: SCHIZOPHRENIA
     Dosage: UNIT DOSE: 75 MG
     Route: 048
     Dates: start: 20090401

REACTIONS (3)
  - BALANCE DISORDER [None]
  - MUSCLE TWITCHING [None]
  - TIC [None]
